FAERS Safety Report 7822026-8 (Version None)
Quarter: 2011Q4

REPORT INFORMATION
  Report Type: 
  Country: None (occurrence: None)
  Receive Date: 20111018
  Receipt Date: 20111007
  Transmission Date: 20120403
  Serious: Yes (Other)
  Sender: FDA-Public Use
  Company Number: PHEH2011US06335

PATIENT
  Sex: Female

DRUGS (3)
  1. UNKNOWN BLOOD PRESSURE MEDICATIONS [Suspect]
     Dosage: 1 DF, QD
  2. TOPROL-XL [Concomitant]
     Dosage: UNK UKN, UNK
  3. DIOVAN [Suspect]
     Dosage: 320 MG, QD

REACTIONS (3)
  - BREAST CANCER [None]
  - BLOOD PRESSURE INADEQUATELY CONTROLLED [None]
  - DRUG INEFFECTIVE [None]
